FAERS Safety Report 17019162 (Version 6)
Quarter: 2020Q1

REPORT INFORMATION
  Report Type: Report from Study
  Country: US (occurrence: US)
  Receive Date: 20191112
  Receipt Date: 20200120
  Transmission Date: 20200409
  Serious: Yes (Life-Threatening, Hospitalization, Other)
  Sender: FDA-Public Use
  Company Number: US-BRISTOL-MYERS SQUIBB COMPANY-BMS-2019-105064

PATIENT
  Age: 70 Year
  Sex: Male
  Weight: 71.6 kg

DRUGS (6)
  1. SIPULEUCEL-T [Suspect]
     Active Substance: SIPULEUCEL-T
     Indication: PROSTATE CANCER METASTATIC
     Dosage: UNK
     Route: 042
     Dates: start: 20190729
  2. ACETAMINOPHEN. [Concomitant]
     Active Substance: ACETAMINOPHEN
     Indication: PRODUCT USED FOR UNKNOWN INDICATION
     Dosage: 650 MILLIGRAM, PRN, EVERYDAY
     Route: 048
  3. ATIVAN [Concomitant]
     Active Substance: LORAZEPAM
     Indication: PRODUCT USED FOR UNKNOWN INDICATION
     Dosage: 1 MILLIGRAM, Q8H, PRN
     Route: 048
  4. LEVOFLOXACIN. [Concomitant]
     Active Substance: LEVOFLOXACIN
     Indication: PRODUCT USED FOR UNKNOWN INDICATION
     Dosage: 750 MILLIGRAM, EVERYDAY
     Route: 048
  5. IPILIMUMAB [Suspect]
     Active Substance: IPILIMUMAB
     Indication: PROSTATE CANCER METASTATIC
     Dosage: 3 MILLIGRAM/KILOGRAM, Q3WK
     Route: 042
     Dates: start: 20190917
  6. VALIUM [Concomitant]
     Active Substance: DIAZEPAM
     Indication: PRODUCT USED FOR UNKNOWN INDICATION
     Dosage: 10 MILLIGRAM, EVERYDAY
     Route: 048

REACTIONS (15)
  - Sepsis [Unknown]
  - Abdominal abscess [Unknown]
  - Embolic stroke [Recovered/Resolved with Sequelae]
  - Hyperglycaemia [Recovered/Resolved]
  - Atrial fibrillation [Unknown]
  - Delirium [Unknown]
  - Generalised oedema [Unknown]
  - Acute kidney injury [Unknown]
  - Intestinal perforation [Recovered/Resolved]
  - Subdural haematoma [Recovered/Resolved]
  - Lactic acidosis [Recovered/Resolved]
  - Venous thrombosis limb [Unknown]
  - Anaemia of chronic disease [Unknown]
  - Colitis [Recovered/Resolved]
  - Malnutrition [Unknown]

NARRATIVE: CASE EVENT DATE: 20191028
